FAERS Safety Report 6936874-X (Version None)
Quarter: 2010Q3

REPORT INFORMATION
  Report Type: 
  Country: None (occurrence: None)
  Receive Date: 20100823
  Receipt Date: 20100811
  Transmission Date: 20110219
  Serious: Yes (Other)
  Sender: FDA-Public Use
  Company Number: US-JNJFOC-20100803972

PATIENT
  Sex: Female
  Weight: 70.31 kg

DRUGS (3)
  1. REMICADE [Suspect]
     Indication: RHEUMATOID ARTHRITIS
     Route: 042
  2. OMEPRAZOLE [Concomitant]
     Indication: GASTROOESOPHAGEAL REFLUX DISEASE
  3. MORPHINE [Concomitant]
     Indication: PAIN

REACTIONS (5)
  - ALOPECIA [None]
  - ARTHRALGIA [None]
  - DENTAL CARIES [None]
  - SWELLING [None]
  - VISION BLURRED [None]
